FAERS Safety Report 6429758-7 (Version None)
Quarter: 2009Q4

REPORT INFORMATION
  Report Type: 
  Country: None (occurrence: None)
  Receive Date: 20091103
  Receipt Date: 20091021
  Transmission Date: 20100525
  Serious: Yes (Hospitalization)
  Sender: FDA-Public Use
  Company Number: 2009AL006862

PATIENT
  Age: 82 Year
  Sex: Male

DRUGS (3)
  1. OXYCODONE HCL [Suspect]
     Indication: HERPES ZOSTER
     Dates: start: 20090701, end: 20090808
  2. TRAMADOL HYDROCHLORIDE [Suspect]
     Indication: HERPES ZOSTER
     Dates: start: 20090701, end: 20090808
  3. PARACETAMOL [Concomitant]

REACTIONS (2)
  - CONFUSIONAL STATE [None]
  - HALLUCINATION, VISUAL [None]
